FAERS Safety Report 8280310-0 (Version None)
Quarter: 2012Q2

REPORT INFORMATION
  Report Type: 
  Country: None (occurrence: None)
  Receive Date: 20120412
  Receipt Date: 20120110
  Transmission Date: 20120825
  Serious: No
  Sender: FDA-Public Use
  Company Number: US-ASTRAZENECA-2012SE02206

PATIENT
  Age: 57 Year
  Sex: Female

DRUGS (3)
  1. FLONASE [Concomitant]
  2. SINGULAIR [Concomitant]
  3. NEXIUM [Suspect]
     Route: 048

REACTIONS (2)
  - COUGH [None]
  - MULTIPLE ALLERGIES [None]
